FAERS Safety Report 9455425 (Version 1)
Quarter: 2013Q3

REPORT INFORMATION
  Report Type: Spontaneous
  Country: US (occurrence: US)
  Receive Date: 20130813
  Receipt Date: 20130813
  Transmission Date: 20140515
  Serious: Yes (Other)
  Sender: FDA-Public Use
  Company Number: US-ASTRAZENECA-2013SE60892

PATIENT
  Age: 47 Year
  Sex: Female
  Weight: 62.6 kg

DRUGS (10)
  1. PRILOSEC [Suspect]
     Indication: GASTROOESOPHAGEAL REFLUX DISEASE
     Route: 048
  2. PRILOSEC [Suspect]
     Indication: GASTROOESOPHAGEAL REFLUX DISEASE
     Route: 048
     Dates: start: 1989, end: 2013
  3. LASIX [Concomitant]
     Indication: SWELLING
     Route: 048
     Dates: start: 2007
  4. LASIX [Concomitant]
     Indication: OEDEMA PERIPHERAL
     Route: 048
     Dates: start: 2007
  5. ALDACTONE [Concomitant]
     Indication: OEDEMA PERIPHERAL
     Route: 048
     Dates: start: 2007
  6. ALDACTONE [Concomitant]
     Indication: SWELLING
     Route: 048
     Dates: start: 2007
  7. MS CONTIN [Concomitant]
     Indication: PAIN
     Route: 048
     Dates: start: 2010
  8. DILAUDID [Concomitant]
     Indication: PAIN
     Route: 048
     Dates: start: 2007
  9. XANAX [Concomitant]
     Indication: SLEEP DISORDER
     Route: 048
     Dates: start: 2007
  10. WARFARIN [Concomitant]
     Indication: DEEP VEIN THROMBOSIS

REACTIONS (10)
  - Tibia fracture [Unknown]
  - Ankle fracture [Unknown]
  - Femur fracture [Unknown]
  - International normalised ratio fluctuation [Unknown]
  - Fall [Unknown]
  - Vitamin D deficiency [Unknown]
  - Osteopenia [Unknown]
  - Gastrooesophageal reflux disease [Unknown]
  - Oedema peripheral [Unknown]
  - Drug ineffective [Unknown]
